FAERS Safety Report 9624441 (Version 3)
Quarter: 2013Q4

REPORT INFORMATION
  Report Type: Spontaneous
  Country: IT (occurrence: IT)
  Receive Date: 20131015
  Receipt Date: 20131023
  Transmission Date: 20140711
  Serious: Yes (Death, Hospitalization, Other)
  Sender: FDA-Public Use
  Company Number: IT-TEVA-436477USA

PATIENT
  Age: 54 Year
  Sex: Male

DRUGS (1)
  1. LEVACT [Suspect]
     Indication: ANGIOIMMUNOBLASTIC T-CELL LYMPHOMA
     Route: 042
     Dates: start: 20111115

REACTIONS (4)
  - Death [Fatal]
  - Disease progression [Unknown]
  - Septic shock [Unknown]
  - Off label use [Unknown]
